FAERS Safety Report 5412224-5 (Version None)
Quarter: 2007Q3

REPORT INFORMATION
  Report Type: 
  Country: None (occurrence: None)
  Receive Date: 20070713
  Receipt Date: 20070518
  Transmission Date: 20080115
  Serious: No
  Sender: FDA-Public Use
  Company Number: 2007SP001866

PATIENT
  Age: 85 Year
  Sex: Male
  Weight: 91.6266 kg

DRUGS (5)
  1. LUNESTA [Suspect]
     Indication: INSOMNIA
     Dosage: 1 MG HS ORAL ; 1 MG 1X ORAL ; 2 MG UNK ORAL
     Route: 048
     Dates: start: 20070517, end: 20070517
  2. LUNESTA [Suspect]
     Indication: INSOMNIA
     Dosage: 1 MG HS ORAL ; 1 MG 1X ORAL ; 2 MG UNK ORAL
     Route: 048
     Dates: start: 20070501
  3. LUNESTA [Suspect]
     Indication: INSOMNIA
     Dosage: 1 MG HS ORAL ; 1 MG 1X ORAL ; 2 MG UNK ORAL
     Route: 048
     Dates: start: 20070501
  4. TAMSULOSIN HCL [Concomitant]
  5. PROSCAR [Concomitant]

REACTIONS (2)
  - DRUG INEFFECTIVE [None]
  - MIDDLE INSOMNIA [None]
